FAERS Safety Report 18755067 (Version 1)
Quarter: 2021Q1

REPORT INFORMATION
  Report Type: Spontaneous
  Country: US (occurrence: US)
  Receive Date: 20210115
  Receipt Date: 20210115
  Transmission Date: 20210419
  Serious: Yes (Hospitalization)
  Sender: FDA-Public Use
  Company Number: None

PATIENT
  Age: 71 Year
  Sex: Female
  Weight: 86.2 kg

DRUGS (2)
  1. BAMLANIVIMAB. [Suspect]
     Active Substance: BAMLANIVIMAB
  2. BAMLANIVIMAB 700MG [Concomitant]
     Active Substance: BAMLANIVIMAB
     Dates: start: 20210115, end: 20210115

REACTIONS (3)
  - Chest pain [None]
  - Back pain [None]
  - Screaming [None]

NARRATIVE: CASE EVENT DATE: 20210115
